FAERS Safety Report 25446107 (Version 2)
Quarter: 2025Q3

REPORT INFORMATION
  Report Type: Spontaneous
  Country: US (occurrence: US)
  Receive Date: 20250617
  Receipt Date: 20250714
  Transmission Date: 20251020
  Serious: Yes (Other)
  Sender: UCB
  Company Number: US-UCBSA-2025035465

PATIENT
  Sex: Female
  Weight: 122.45 kg

DRUGS (1)
  1. BIMZELX [Suspect]
     Active Substance: BIMEKIZUMAB-BKZX
     Indication: Hidradenitis
     Dosage: 320 MILLIGRAM, EV 2 WEEKS(QOW)
     Route: 058
     Dates: start: 202504

REACTIONS (2)
  - Central venous catheterisation [Unknown]
  - Joint dislocation [Unknown]

NARRATIVE: CASE EVENT DATE: 20250101
